FAERS Safety Report 6603503-4 (Version None)
Quarter: 2010Q1

REPORT INFORMATION
  Report Type: 
  Country: None (occurrence: None)
  Receive Date: 20100226
  Receipt Date: 20090804
  Transmission Date: 20100710
  Serious: No
  Sender: FDA-Public Use
  Company Number: A0800439A

PATIENT
  Age: 35 Year
  Sex: Male

DRUGS (3)
  1. VALTREX [Suspect]
     Dosage: 500MG TWICE PER DAY
     Route: 048
     Dates: start: 20090711, end: 20090801
  2. ALLEGRA [Concomitant]
  3. CRESTOR [Concomitant]

REACTIONS (7)
  - ABDOMINAL DISTENSION [None]
  - ASTHENIA [None]
  - CHEILITIS [None]
  - DIZZINESS [None]
  - FATIGUE [None]
  - HEADACHE [None]
  - WEIGHT INCREASED [None]
